FAERS Safety Report 8027864-7 (Version None)
Quarter: 2012Q1

REPORT INFORMATION
  Report Type: 
  Country: None (occurrence: None)
  Receive Date: 20120104
  Receipt Date: 20111229
  Transmission Date: 20120608
  Serious: Yes (Other)
  Sender: FDA-Public Use
  Company Number: AUR-APL-2011-06325

PATIENT
  Age: 48 Year
  Sex: Male
  Weight: 103 kg

DRUGS (6)
  1. VALPROATE SODIUM [Concomitant]
  2. ACETAMINOPHEN [Concomitant]
  3. TEGRETOL RETAARD (CARBAMAZEPINE) [Concomitant]
  4. SULFASALAZINE [Concomitant]
  5. RANITIDINE HYDROCHLORIDE [Concomitant]
  6. GABAPENTIN [Suspect]
     Indication: TREMOR
     Dosage: 1800 MG (1800 MG, 1 IN 1 D), ORAL
     Route: 048
     Dates: start: 20110913, end: 20111130

REACTIONS (1)
  - NEUTROPENIA [None]
